FAERS Safety Report 16928933 (Version 1)
Quarter: 2019Q4

REPORT INFORMATION
  Report Type: Spontaneous
  Country: US (occurrence: US)
  Receive Date: 20191017
  Receipt Date: 20191017
  Transmission Date: 20200122
  Serious: No
  Sender: FDA-Public Use
  Company Number: US-ADAREPHARM-2019-US-000008

PATIENT
  Sex: Male

DRUGS (2)
  1. KCL [Suspect]
     Active Substance: POTASSIUM CHLORIDE
     Dosage: VARIABLE DOSE - CURRENTLY 6 TABLETS EVERY 12 HOURS
     Route: 048
  2. LASIX [Concomitant]
     Active Substance: FUROSEMIDE

REACTIONS (3)
  - Wrong technique in product usage process [Unknown]
  - Product use complaint [Unknown]
  - Product complaint [Unknown]
